FAERS Safety Report 18936158 (Version 1)
Quarter: 2021Q1

REPORT INFORMATION
  Report Type: Spontaneous
  Country: FR (occurrence: FR)
  Receive Date: 20210224
  Receipt Date: 20210224
  Transmission Date: 20210420
  Serious: Yes (Hospitalization)
  Sender: FDA-Public Use
  Company Number: FR-TEVA-2021-FR-1882980

PATIENT
  Age: 78 Year
  Sex: Male
  Weight: 86 kg

DRUGS (6)
  1. ELIQUIS [Concomitant]
     Active Substance: APIXABAN
  2. BISOPROLOL (FUMARATE ACIDE DE) [Suspect]
     Active Substance: BISOPROLOL FUMARATE
     Indication: HYPERTENSION
     Dosage: 2 DF
     Route: 048
     Dates: start: 202009, end: 202012
  3. LEVOTHYROX [Concomitant]
     Active Substance: LEVOTHYROXINE
  4. LASILIX [Concomitant]
     Active Substance: FUROSEMIDE
  5. ALLOPURINOL. [Suspect]
     Active Substance: ALLOPURINOL
     Indication: GOUT
     Route: 048
     Dates: start: 202010, end: 20201224
  6. AMIODARONE [Concomitant]
     Active Substance: AMIODARONE

REACTIONS (1)
  - Dermatitis exfoliative generalised [Recovering/Resolving]

NARRATIVE: CASE EVENT DATE: 20201101
